FAERS Safety Report 8004844-9 (Version None)
Quarter: 2011Q4

REPORT INFORMATION
  Report Type: 
  Country: None (occurrence: None)
  Receive Date: 20111223
  Receipt Date: 20111223
  Transmission Date: 20120403
  Serious: Yes (Other)
  Sender: FDA-Public Use
  Company Number: None

PATIENT
  Sex: Male
  Weight: 106.59 kg

DRUGS (1)
  1. PROPECIA [Suspect]
     Indication: ANDROGENETIC ALOPECIA
     Dosage: ONE
     Dates: start: 19971222, end: 20030820

REACTIONS (4)
  - ERECTILE DYSFUNCTION [None]
  - ANHEDONIA [None]
  - MENTAL DISORDER [None]
  - ANXIETY [None]
